FAERS Safety Report 9645686 (Version 1)
Quarter: 2013Q4

REPORT INFORMATION
  Report Type: Spontaneous
  Country: US (occurrence: US)
  Receive Date: 20131025
  Receipt Date: 20131025
  Transmission Date: 20140711
  Serious: Yes (Hospitalization, Other)
  Sender: FDA-Public Use
  Company Number: US-AMGEN-USASP2013075257

PATIENT
  Age: 70 Year
  Sex: Female

DRUGS (2)
  1. ENBREL [Suspect]
     Indication: RHEUMATOID ARTHRITIS
     Dosage: 50 MG, QWK
     Route: 065
     Dates: start: 20020101
  2. METHOTREXATE [Concomitant]
     Dosage: 12.5 MG, QWK ON FOR 3 WEEKS NOW

REACTIONS (3)
  - Lung neoplasm malignant [Recovered/Resolved]
  - Neutropenia [Recovered/Resolved]
  - Rheumatoid arthritis [Not Recovered/Not Resolved]
